FAERS Safety Report 26058281 (Version 1)
Quarter: 2025Q4

REPORT INFORMATION
  Report Type: Report from Study
  Country: US (occurrence: US)
  Receive Date: 20251118
  Receipt Date: 20251118
  Transmission Date: 20260118
  Serious: Yes (Other)
  Sender: CSL BEHRING
  Company Number: US-BEH-2025225270

PATIENT
  Age: 43 Year
  Sex: Female

DRUGS (3)
  1. GARADACIMAB [Suspect]
     Active Substance: GARADACIMAB
     Indication: Immunodeficiency
     Dosage: 400 MG (2 PENS)
     Route: 058
     Dates: start: 20251025, end: 20251025
  2. GARADACIMAB [Suspect]
     Active Substance: GARADACIMAB
     Indication: Hereditary angioedema
     Dosage: 400 MG, QMT (1 PEN)
     Route: 058
  3. GARADACIMAB [Suspect]
     Active Substance: GARADACIMAB
     Indication: Prophylaxis

REACTIONS (3)
  - Drug ineffective [Unknown]
  - Hereditary angioedema [Recovered/Resolved]
  - Off label use [Unknown]

NARRATIVE: CASE EVENT DATE: 20251106
